FAERS Safety Report 6882962 (Version 4)
Quarter: 2013Q4

REPORT INFORMATION
  Report Type: Spontaneous
  Country: US (occurrence: US)
  Receive Date: 20090116
  Receipt Date: 20131014
  Transmission Date: 20140711
  Serious: Yes (Other)
  Sender: FDA-Public Use
  Company Number: US-PFIZER INC-K200800303

PATIENT
  Age: 55 Year
  Sex: Female
  Weight: 58.96 kg

DRUGS (4)
  1. CORGARD [Suspect]
     Indication: MITRAL VALVE PROLAPSE
     Dosage: 40 MG, DAILY
     Route: 048
     Dates: start: 1983, end: 1983
  2. CORGARD [Suspect]
     Dosage: 80 MG, DAILY
     Route: 048
     Dates: start: 1983, end: 201104
  3. CORGARD [Suspect]
     Dosage: 40MG (1/2 OF 80 MG), DAILY IN THE MORNING
     Dates: start: 20110414, end: 2011
  4. NADOLOL [Suspect]
     Indication: TACHYCARDIA
     Dosage: 20 MG, DAILY
     Route: 048
     Dates: start: 20110724

REACTIONS (29)
  - Urinary retention [Recovered/Resolved]
  - Obstructive airways disorder [Not Recovered/Not Resolved]
  - Bladder discomfort [Recovered/Resolved]
  - Tooth discolouration [Unknown]
  - Dyspnoea [Not Recovered/Not Resolved]
  - Blood cholesterol increased [Recovered/Resolved]
  - Chest discomfort [Not Recovered/Not Resolved]
  - Palpitations [Unknown]
  - Dysgeusia [Recovered/Resolved]
  - Abdominal pain upper [Recovered/Resolved]
  - Dyspepsia [Recovered/Resolved]
  - Chills [Not Recovered/Not Resolved]
  - Skin warm [Not Recovered/Not Resolved]
  - Dry eye [Not Recovered/Not Resolved]
  - Flank pain [Not Recovered/Not Resolved]
  - Glossodynia [Not Recovered/Not Resolved]
  - Hypotension [Recovering/Resolving]
  - Heart rate decreased [Unknown]
  - Fatigue [Unknown]
  - Somnolence [Unknown]
  - Dizziness [Unknown]
  - Feeling abnormal [Unknown]
  - Bronchospasm [Not Recovered/Not Resolved]
  - Nausea [Not Recovered/Not Resolved]
  - Pyrexia [Not Recovered/Not Resolved]
  - Malaise [Not Recovered/Not Resolved]
  - Back pain [Not Recovered/Not Resolved]
  - Eye irritation [Not Recovered/Not Resolved]
  - Vision blurred [Not Recovered/Not Resolved]
